FAERS Safety Report 7621756-0 (Version None)
Quarter: 2011Q3

REPORT INFORMATION
  Report Type: 
  Country: None (occurrence: None)
  Receive Date: 20110719
  Receipt Date: 20110715
  Transmission Date: 20111222
  Serious: Yes (Life-Threatening, Other)
  Sender: FDA-Public Use
  Company Number: FR-BRISTOL-MYERS SQUIBB COMPANY-15907157

PATIENT
  Age: 20 Year
  Sex: Female

DRUGS (4)
  1. BICNU [Suspect]
     Route: 042
     Dates: start: 20101203
  2. ALKERAN [Suspect]
     Route: 042
     Dates: start: 20101201
  3. CYTARABINE [Suspect]
     Route: 042
     Dates: start: 20101201
  4. VEPESID [Suspect]
     Route: 042
     Dates: start: 20101201

REACTIONS (5)
  - RADIATION MUCOSITIS [None]
  - DECREASED APPETITE [None]
  - APLASIA [None]
  - SEPTIC SHOCK [None]
  - ENCEPHALOPATHY [None]
